FAERS Safety Report 20160208 (Version 1)
Quarter: 2021Q4

REPORT INFORMATION
  Report Type: Spontaneous
  Country: US (occurrence: None)
  Receive Date: 20211207
  Receipt Date: 20211207
  Transmission Date: 20220303
  Serious: Yes (Hospitalization)
  Sender: FDA-Public Use
  Company Number: None

PATIENT
  Sex: Female

DRUGS (6)
  1. HUMIRA [Suspect]
     Active Substance: ADALIMUMAB
     Indication: Crohn^s disease
     Dosage: OTHER QUANTITY : 40/0.4 MG/ML;?FREQUENCY : EVERY OTHER WEEK;?
     Route: 058
     Dates: start: 20190710
  2. CLOBETASOL SOL [Concomitant]
  3. FOLIC ACID [Concomitant]
     Active Substance: FOLIC ACID
  4. LINZESS [Concomitant]
     Active Substance: LINACLOTIDE
  5. LISINOPRIL [Concomitant]
     Active Substance: LISINOPRIL
  6. TRAZODONE [Concomitant]
     Active Substance: TRAZODONE HYDROCHLORIDE

REACTIONS (1)
  - Urinary tract infection [None]
